FAERS Safety Report 18966092 (Version 3)
Quarter: 2021Q2

REPORT INFORMATION
  Report Type: Spontaneous
  Country: JP (occurrence: JP)
  Receive Date: 20210304
  Receipt Date: 20210601
  Transmission Date: 20210717
  Serious: Yes (Other)
  Sender: FDA-Public Use
  Company Number: JP-AMGEN-JPNSP2021011136

PATIENT
  Age: 62 Year
  Sex: Male

DRUGS (2)
  1. SAWACILLIN [Concomitant]
     Active Substance: AMOXICILLIN
     Dosage: 500 MILLIGRAM, TID
     Route: 065
     Dates: start: 20210122, end: 20210506
  2. OTEZLA [Suspect]
     Active Substance: APREMILAST
     Indication: PSORIASIS
     Dosage: 30 MILLIGRAM, BID
     Route: 048
     Dates: start: 20180122, end: 20210122

REACTIONS (1)
  - Secondary syphilis [Recovered/Resolved]

NARRATIVE: CASE EVENT DATE: 20210122
